FAERS Safety Report 4715876-8 (Version None)
Quarter: 2005Q3

REPORT INFORMATION
  Report Type: 
  Country: None (occurrence: None)
  Receive Date: 20050718
  Receipt Date: 20050630
  Transmission Date: 20060218
  Serious: Yes (Life-Threatening, Hospitalization)
  Sender: FDA-Public Use
  Company Number: DE-ROCHE-409285

PATIENT
  Age: 38 Year
  Sex: Female

DRUGS (4)
  1. MYCOPHENOLATE MOFETIL [Suspect]
     Dosage: DAILY DOSE UNITS REPORTED AS MG.
     Route: 048
     Dates: start: 20040922
  2. PROGRAF [Concomitant]
  3. CORTICOSTEROIDS [Concomitant]
  4. DECORTIN [Concomitant]

REACTIONS (3)
  - DEEP VEIN THROMBOSIS [None]
  - KIDNEY TRANSPLANT REJECTION [None]
  - LYMPHOCELE [None]
